FAERS Safety Report 5637139-9 (Version None)
Quarter: 2008Q1

REPORT INFORMATION
  Report Type: 
  Country: None (occurrence: None)
  Receive Date: 20080225
  Receipt Date: 20071120
  Transmission Date: 20080703
  Serious: No
  Sender: FDA-Public Use
  Company Number: US-BRISTOL-MYERS SQUIBB COMPANY-13989355

PATIENT

DRUGS (1)
  1. GLUCOPHAGE [Suspect]
     Route: 048

REACTIONS (1)
  - BLOOD GLUCOSE ABNORMAL [None]
